FAERS Safety Report 16300437 (Version 1)
Quarter: 2019Q2

REPORT INFORMATION
  Report Type: Report from Study
  Country: IE (occurrence: IE)
  Receive Date: 20190510
  Receipt Date: 20190510
  Transmission Date: 20190711
  Serious: Yes (Other)
  Sender: FDA-Public Use
  Company Number: IE-JNJFOC-20190503971

PATIENT
  Age: 69 Year
  Sex: Male

DRUGS (5)
  1. AMLODIPINE [Concomitant]
     Active Substance: AMLODIPINE BESYLATE
     Route: 065
  2. CALCICHEW [Concomitant]
     Active Substance: CALCIUM CARBONATE
     Route: 065
  3. FIRMAGON [Concomitant]
     Active Substance: DEGARELIX ACETATE
     Route: 065
  4. DELTACORTRIL [Concomitant]
     Active Substance: PREDNISOLONE
     Route: 065
  5. ZYTIGA [Suspect]
     Active Substance: ABIRATERONE ACETATE
     Indication: PROSTATE CANCER METASTATIC
     Route: 048
     Dates: start: 20180827

REACTIONS (1)
  - Bladder catheterisation [Not Recovered/Not Resolved]

NARRATIVE: CASE EVENT DATE: 20190429
